FAERS Safety Report 23576353 (Version 2)
Quarter: 2024Q1

REPORT INFORMATION
  Report Type: Spontaneous
  Country: US (occurrence: US)
  Receive Date: 20240228
  Receipt Date: 20240301
  Transmission Date: 20240409
  Serious: Yes (Other)
  Sender: FDA-Public Use
  Company Number: US-PFIZER INC-PV202200100676

PATIENT
  Age: 45 Year
  Sex: Male
  Weight: 127.01 kg

DRUGS (2)
  1. XELJANZ XR [Suspect]
     Active Substance: TOFACITINIB CITRATE
     Indication: Rheumatoid arthritis
     Dosage: 11 MG, 1X/DAY IN THE MORNING
     Route: 048
  2. XELJANZ XR [Suspect]
     Active Substance: TOFACITINIB CITRATE
     Dosage: UNK

REACTIONS (4)
  - Glaucoma [Unknown]
  - COVID-19 [Unknown]
  - Condition aggravated [Recovering/Resolving]
  - Upper respiratory tract infection [Unknown]

NARRATIVE: CASE EVENT DATE: 20221201
